FAERS Safety Report 5196697-1 (Version None)
Quarter: 2007Q1

REPORT INFORMATION
  Report Type: 
  Country: None (occurrence: None)
  Receive Date: 20070103
  Receipt Date: 20061222
  Transmission Date: 20070707
  Serious: Yes (Disabling)
  Sender: FDA-Public Use
  Company Number: US-BRISTOL-MYERS SQUIBB COMPANY-13541081

PATIENT
  Age: 43 Year
  Sex: Male

DRUGS (9)
  1. SUSTIVA [Suspect]
     Indication: HIV INFECTION
     Route: 048
     Dates: start: 20060706, end: 20061031
  2. TRUVADA [Suspect]
     Route: 048
     Dates: start: 20060706, end: 20061031
  3. POTASSIUM CHLORIDE [Concomitant]
  4. PHENERGAN [Concomitant]
  5. DICYCLOMINE [Concomitant]
  6. METHADONE HCL [Concomitant]
  7. NEURONTIN [Concomitant]
  8. MEPRON [Concomitant]
     Dosage: 750 MG/5 ML
     Route: 048
  9. AMBIEN [Concomitant]

REACTIONS (1)
  - MEDICATION RESIDUE [None]
